FAERS Safety Report 8321681-6 (Version None)
Quarter: 2012Q2

REPORT INFORMATION
  Report Type: 
  Country: None (occurrence: None)
  Receive Date: 20120430
  Receipt Date: 20091030
  Transmission Date: 20120825
  Serious: No
  Sender: FDA-Public Use
  Company Number: US-TEVA-2009012001

PATIENT
  Sex: Male
  Weight: 93.07 kg

DRUGS (8)
  1. XYREM [Concomitant]
  2. CYMBALTA [Concomitant]
  3. ABILIFY [Concomitant]
  4. MORPHINE [Concomitant]
  5. TRIAZOLAM [Concomitant]
  6. NUVIGIL [Suspect]
     Indication: SLEEP DISORDER
     Dosage: 250 MILLIGRAM;
     Route: 048
     Dates: start: 20090901
  7. OXYCODONE HCL [Concomitant]
  8. LITHIUM CARBONATE [Concomitant]

REACTIONS (1)
  - DRUG EFFECT DECREASED [None]
